FAERS Safety Report 9814738 (Version 2)
Quarter: 2014Q1

REPORT INFORMATION
  Report Type: Spontaneous
  Country: US (occurrence: US)
  Receive Date: 20140113
  Receipt Date: 20140113
  Transmission Date: 20141002
  Serious: Yes (Other)
  Sender: FDA-Public Use
  Company Number: US-SANOFI-AVENTIS-2013SA050737

PATIENT
  Age: 64 Year
  Sex: Female
  Weight: 77.11 kg

DRUGS (3)
  1. DOCETAXEL [Suspect]
     Indication: BREAST CANCER
     Route: 042
     Dates: start: 20130403, end: 20130403
  2. CARBOPLATIN [Concomitant]
  3. HERCEPTIN [Concomitant]

REACTIONS (3)
  - Skin necrosis [Recovered/Resolved]
  - Blister [Recovered/Resolved]
  - Skin hyperpigmentation [Recovered/Resolved]
